FAERS Safety Report 24060940 (Version 1)
Quarter: 2024Q3

REPORT INFORMATION
  Report Type: Report from Study
  Country: CA (occurrence: CA)
  Receive Date: 20240708
  Receipt Date: 20240708
  Transmission Date: 20241016
  Serious: Yes (Other)
  Sender: TEVA
  Company Number: CA-TEVA-VS-3215919

PATIENT
  Age: 58 Year
  Sex: Male

DRUGS (1)
  1. AJOVY [Suspect]
     Active Substance: FREMANEZUMAB-VFRM
     Indication: Migraine prophylaxis
     Route: 058
     Dates: start: 20240614, end: 20240614

REACTIONS (9)
  - Chest discomfort [Recovering/Resolving]
  - Hypoaesthesia [Unknown]
  - Dyspnoea [Unknown]
  - Swelling [Unknown]
  - Dizziness [Recovering/Resolving]
  - Tremor [Unknown]
  - Muscle twitching [Recovering/Resolving]
  - Heart rate increased [Recovering/Resolving]
  - Hypotension [Recovering/Resolving]

NARRATIVE: CASE EVENT DATE: 20240601
